FAERS Safety Report 7310494-X (Version None)
Quarter: 2011Q1

REPORT INFORMATION
  Report Type: 
  Country: None (occurrence: None)
  Receive Date: 20110224
  Receipt Date: 20101026
  Transmission Date: 20110831
  Serious: No
  Sender: FDA-Public Use
  Company Number: US-BRISTOL-MYERS SQUIBB COMPANY-15354244

PATIENT
  Age: 33 Year
  Sex: Female

DRUGS (2)
  1. GLUCOPHAGE XR [Suspect]
     Dosage: 1DF: 4 TABLETS TAKEN AT EVENING MEAL.
  2. METFORMIN HCL [Suspect]

REACTIONS (2)
  - MEDICATION RESIDUE [None]
  - DIARRHOEA [None]
